FAERS Safety Report 8158241-6 (Version None)
Quarter: 2012Q1

REPORT INFORMATION
  Report Type: 
  Country: None (occurrence: None)
  Receive Date: 20120223
  Receipt Date: 20120218
  Transmission Date: 20120608
  Serious: Yes (Hospitalization, Disabling, Other)
  Sender: FDA-Public Use
  Company Number: IT-BIOGENIDEC-2011BI036927

PATIENT
  Age: 28 Year
  Sex: Female

DRUGS (1)
  1. TYSABRI [Suspect]
     Indication: MULTIPLE SCLEROSIS
     Dates: start: 20090824, end: 20110902

REACTIONS (2)
  - PARTIAL SEIZURES [None]
  - PROGRESSIVE MULTIFOCAL LEUKOENCEPHALOPATHY [None]
